FAERS Safety Report 19025065 (Version 1)
Quarter: 2021Q1

REPORT INFORMATION
  Report Type: Spontaneous
  Country: US (occurrence: US)
  Receive Date: 20210318
  Receipt Date: 20210318
  Transmission Date: 20210420
  Serious: Yes (Other)
  Sender: FDA-Public Use
  Company Number: US-DRREDDYS-USA/USA/21/0132977

PATIENT
  Age: 12 Year
  Sex: Female

DRUGS (4)
  1. ISAVUCONAZOLE [Suspect]
     Active Substance: ISAVUCONAZOLE
     Indication: PHAEOHYPHOMYCOSIS
  2. TERBINAFINE. [Suspect]
     Active Substance: TERBINAFINE
     Indication: PHAEOHYPHOMYCOSIS
  3. LIPOSOMAL AMPHOTERICIN B [Suspect]
     Active Substance: AMPHOTERICIN B
     Indication: PHAEOHYPHOMYCOSIS
  4. MICAFUNGIN. [Suspect]
     Active Substance: MICAFUNGIN SODIUM
     Indication: PHAEOHYPHOMYCOSIS

REACTIONS (2)
  - Hypertension [Unknown]
  - Chronic kidney disease [Unknown]
